FAERS Safety Report 7472337-3 (Version None)
Quarter: 2011Q1

REPORT INFORMATION
  Report Type: 
  Country: None (occurrence: None)
  Receive Date: 20110302
  Receipt Date: 20101214
  Transmission Date: 20110831
  Serious: Yes (Hospitalization, Other)
  Sender: FDA-Public Use
  Company Number: 163-21880-10100284

PATIENT
  Age: 82 Year
  Sex: Male

DRUGS (3)
  1. COUMADIN [Concomitant]
  2. REVLIMID [Suspect]
     Indication: MULTIPLE MYELOMA
     Dosage: 25 MG, DAILY X 21 DAYS, PO; 10 MG, DAILY FOR 21 DAYS, PO
     Route: 048
     Dates: start: 20100301, end: 20100901
  3. REVLIMID [Suspect]
     Indication: MULTIPLE MYELOMA
     Dosage: 25 MG, DAILY X 21 DAYS, PO; 10 MG, DAILY FOR 21 DAYS, PO
     Route: 048
     Dates: start: 20080401

REACTIONS (11)
  - MENTAL STATUS CHANGES [None]
  - ANAEMIA [None]
  - ASTHENIA [None]
  - RENAL FAILURE [None]
  - PNEUMONIA [None]
  - THROMBOCYTOPENIA [None]
  - HYPOTENSION [None]
  - DEHYDRATION [None]
  - HYPERKALAEMIA [None]
  - URINARY TRACT INFECTION [None]
  - WHITE BLOOD CELL COUNT DECREASED [None]
